FAERS Safety Report 17666805 (Version 1)
Quarter: 2020Q2

REPORT INFORMATION
  Report Type: Spontaneous
  Country: US (occurrence: US)
  Receive Date: 20200414
  Receipt Date: 20200414
  Transmission Date: 20200713
  Serious: No
  Sender: FDA-Public Use
  Company Number: US-JAZZ-2019-US-017742

PATIENT
  Age: 21 Year
  Sex: Female

DRUGS (3)
  1. ABILIFY [Concomitant]
     Active Substance: ARIPIPRAZOLE
  2. XYREM [Concomitant]
     Active Substance: SODIUM OXYBATE
     Dosage: 9G, QD
  3. SUNOSI [Suspect]
     Active Substance: SOLRIAMFETOL
     Dosage: UNK

REACTIONS (2)
  - Palpitations [Unknown]
  - Anxiety [Unknown]
